FAERS Safety Report 7462182-7 (Version None)
Quarter: 2011Q2

REPORT INFORMATION
  Report Type: 
  Country: None (occurrence: None)
  Receive Date: 20110506
  Receipt Date: 20110503
  Transmission Date: 20111010
  Serious: Yes (Other)
  Sender: FDA-Public Use
  Company Number: DE-SANOFI-AVENTIS-2011SA022641

PATIENT
  Age: 66 Year
  Sex: Male
  Weight: 86 kg

DRUGS (1)
  1. MULTAQ [Suspect]
     Indication: ATRIAL FIBRILLATION
     Route: 048
     Dates: start: 20101022, end: 20110208

REACTIONS (6)
  - HEADACHE [None]
  - DEPRESSION [None]
  - NAUSEA [None]
  - MALAISE [None]
  - MYALGIA [None]
  - ARTHRALGIA [None]
